FAERS Safety Report 12114863 (Version 2)
Quarter: 2016Q1

REPORT INFORMATION
  Report Type: Spontaneous
  Country: JP (occurrence: JP)
  Receive Date: 20160225
  Receipt Date: 20160305
  Transmission Date: 20160526
  Serious: Yes (Hospitalization, Other)
  Sender: FDA-Public Use
  Company Number: JP-BRISTOL-MYERS SQUIBB COMPANY-BMS-2016-010600

PATIENT
  Age: 69 Year
  Sex: Male

DRUGS (10)
  1. NASEA [Concomitant]
     Active Substance: RAMOSETRON HYDROCHLORIDE
     Indication: PRODUCT USED FOR UNKNOWN INDICATION
     Dosage: UNK
     Route: 065
     Dates: start: 20151015
  2. BRIPLATIN [Suspect]
     Active Substance: CISPLATIN
     Indication: PRODUCT USED FOR UNKNOWN INDICATION
     Dosage: UNK
     Route: 065
     Dates: start: 20141015
  3. TS-1 [Concomitant]
     Active Substance: GIMERACIL\OTERACIL\TEGAFUR
     Indication: PRODUCT USED FOR UNKNOWN INDICATION
     Dosage: UNK
     Route: 065
     Dates: start: 20141008
  4. NIVOLUMAB [Suspect]
     Active Substance: NIVOLUMAB
     Dosage: 20 MG, UNK
     Route: 041
     Dates: start: 2015, end: 2015
  5. NIVOLUMAB [Suspect]
     Active Substance: NIVOLUMAB
     Dosage: 20 MG, UNK
     Route: 041
     Dates: start: 20151225, end: 20151225
  6. NIVOLUMAB [Suspect]
     Active Substance: NIVOLUMAB
     Indication: GASTRIC CANCER
     Dosage: 20 MG, UNK
     Route: 041
     Dates: start: 20151028, end: 20151028
  7. NIVOLUMAB [Suspect]
     Active Substance: NIVOLUMAB
     Dosage: 20 MG, UNK
     Route: 041
     Dates: start: 2015, end: 2015
  8. ALOXI [Concomitant]
     Active Substance: PALONOSETRON HYDROCHLORIDE
     Indication: PRODUCT USED FOR UNKNOWN INDICATION
     Dosage: UNK
     Route: 065
     Dates: start: 20141015
  9. NIVOLUMAB [Suspect]
     Active Substance: NIVOLUMAB
     Dosage: 20 MG, UNK
     Route: 041
     Dates: start: 2015, end: 2015
  10. SOLU-MEDROL [Concomitant]
     Active Substance: METHYLPREDNISOLONE SODIUM SUCCINATE
     Indication: PRODUCT USED FOR UNKNOWN INDICATION
     Dosage: UNK
     Route: 065
     Dates: start: 20141015

REACTIONS (3)
  - Organising pneumonia [Recovering/Resolving]
  - Interstitial lung disease [Not Recovered/Not Resolved]
  - Off label use [Unknown]

NARRATIVE: CASE EVENT DATE: 20151028
